FAERS Safety Report 16373919 (Version 1)
Quarter: 2019Q2

REPORT INFORMATION
  Report Type: Spontaneous
  Country: US (occurrence: US)
  Receive Date: 20190425
  Receipt Date: 20190425
  Transmission Date: 20190711
  Serious: No
  Sender: FDA-Public Use
  Company Number: None

PATIENT
  Age: 74 Year
  Sex: Male
  Weight: 96.62 kg

DRUGS (6)
  1. ATORVASTATIN [Concomitant]
     Active Substance: ATORVASTATIN
  2. FLAX SEED [Concomitant]
     Active Substance: FLAX SEED
  3. ERLEADA [Suspect]
     Active Substance: APALUTAMIDE
     Indication: PROSTATE CANCER
     Route: 048
     Dates: start: 20181017
  4. BICALUTAMIDE. [Concomitant]
     Active Substance: BICALUTAMIDE
  5. ELIGARD [Concomitant]
     Active Substance: LEUPROLIDE ACETATE
  6. DOCUSATE [Concomitant]
     Active Substance: DOCUSATE

REACTIONS (3)
  - Prostatic specific antigen increased [None]
  - Scrotal disorder [None]
  - Pruritus [None]
